FAERS Safety Report 13859904 (Version 1)
Quarter: 2017Q3

REPORT INFORMATION
  Report Type: Spontaneous
  Country: PE (occurrence: PE)
  Receive Date: 20170811
  Receipt Date: 20170811
  Transmission Date: 20171127
  Serious: Yes (Other)
  Sender: FDA-Public Use
  Company Number: PE-GLAXOSMITHKLINE-PE2017GSK122918

PATIENT
  Sex: Male

DRUGS (1)
  1. SERETIDE [Suspect]
     Active Substance: FLUTICASONE PROPIONATE\SALMETEROL XINAFOATE
     Indication: ASTHMA
     Dosage: UNK UNK, 6D
     Route: 055

REACTIONS (5)
  - Pulmonary fibrosis [Unknown]
  - Dysphonia [Recovered/Resolved]
  - Product use issue [Unknown]
  - Respiratory failure [Recovered/Resolved]
  - Nasopharyngitis [Recovered/Resolved]
